FAERS Safety Report 18110365 (Version 2)
Quarter: 2020Q3

REPORT INFORMATION
  Report Type: Spontaneous
  Country: CA (occurrence: CA)
  Receive Date: 20200804
  Receipt Date: 20200827
  Transmission Date: 20201103
  Serious: Yes (Other)
  Sender: FDA-Public Use
  Company Number: CA-TEVA-2020-CA-1810049

PATIENT
  Age: 57 Year
  Sex: Female

DRUGS (4)
  1. PEMETREXED. [Suspect]
     Active Substance: PEMETREXED
     Indication: COLON CANCER STAGE III
     Dosage: SEVEN 21?DAY CYCLES; ON DAY ONE OF EACH CYCLE, PEMETREXED WAS INFUSED FIRST OVER 10MIN, AND FOLLO...
     Route: 041
  2. OXALIPLATIN. [Suspect]
     Active Substance: OXALIPLATIN
     Indication: COLON CANCER STAGE III
     Dosage: SEVEN 21?DAY CYCLES; ON DAY ONE OF EACH CYCLE, PEMETREXED WAS INFUSED FIRST OVER 10MIN, AND FOLLO...
     Route: 065
  3. OXALIPLATIN. [Suspect]
     Active Substance: OXALIPLATIN
     Indication: COLON CANCER STAGE III
     Dosage: INITIALLY, IT WAS GIVEN AS CAPOX REGIMEN. LATER, IT WAS GIVEN WITH PEMETREXED AT 130MG/M2.
     Route: 065
  4. CAPECITABINE. [Suspect]
     Active Substance: CAPECITABINE
     Indication: COLON CANCER STAGE III
     Dosage: CAPOX REGIMEN
     Route: 065

REACTIONS (8)
  - Cardiotoxicity [Unknown]
  - Stomatitis [Recovering/Resolving]
  - Dysaesthesia [Unknown]
  - Neuropathy peripheral [Unknown]
  - Rash maculo-papular [Recovered/Resolved]
  - Fatigue [Unknown]
  - Muscle tightness [Unknown]
  - Rash pruritic [Recovered/Resolved]
